FAERS Safety Report 13598677 (Version 1)
Quarter: 2017Q2

REPORT INFORMATION
  Report Type: Spontaneous
  Country: GR (occurrence: GR)
  Receive Date: 20170531
  Receipt Date: 20170531
  Transmission Date: 20170830
  Serious: Yes (Other)
  Sender: FDA-Public Use
  Company Number: GR-PFIZER INC-2017233231

PATIENT
  Sex: Female

DRUGS (1)
  1. LIPITOR [Suspect]
     Active Substance: ATORVASTATIN CALCIUM
     Indication: BLOOD CHOLESTEROL
     Dosage: 10 MG, UNK

REACTIONS (9)
  - Arrhythmia [Unknown]
  - Blood creatine phosphokinase increased [Unknown]
  - Condition aggravated [Unknown]
  - Cardiac disorder [Unknown]
  - Respiratory disorder [Unknown]
  - Blood thyroid stimulating hormone increased [Unknown]
  - Restlessness [Unknown]
  - Hypothyroidism [Unknown]
  - Pain in extremity [Unknown]
